FAERS Safety Report 6140977-X (Version None)
Quarter: 2009Q2

REPORT INFORMATION
  Report Type: 
  Country: None (occurrence: None)
  Receive Date: 20090402
  Receipt Date: 20090325
  Transmission Date: 20091009
  Serious: Yes (Other)
  Sender: FDA-Public Use
  Company Number: GB-ASTRAZENECA-2009GB00755

PATIENT
  Age: 69 Year
  Sex: Female

DRUGS (11)
  1. VERSATIS [Suspect]
     Indication: CENTRAL PAIN SYNDROME
     Dosage: APPLIED PART OF A MEDICATED PLASTER DAILY TO HER FACE
     Route: 061
     Dates: start: 20090106
  2. VERSATIS [Suspect]
     Indication: FACIAL PAIN
     Dosage: APPLIED PART OF A MEDICATED PLASTER DAILY TO HER FACE
     Route: 061
     Dates: start: 20090106
  3. BOTULINUM TOXIN TYPE A [Concomitant]
  4. FENTANYL-25 [Concomitant]
     Route: 062
  5. GABAPENTIN [Concomitant]
  6. LANSOPRAZOLE [Concomitant]
  7. TAMOXIFEN CITRATE [Concomitant]
  8. THYROXINE [Concomitant]
  9. WARFARIN SODIUM [Concomitant]
  10. TIZANIDINE HCL [Concomitant]
  11. ATORVASTATIN CALCIUM [Concomitant]

REACTIONS (1)
  - DEAFNESS UNILATERAL [None]
